FAERS Safety Report 4795004-3 (Version None)
Quarter: 2005Q4

REPORT INFORMATION
  Report Type: 
  Country: None (occurrence: None)
  Receive Date: 20051006
  Receipt Date: 20050920
  Transmission Date: 20060501
  Serious: Yes (Hospitalization)
  Sender: FDA-Public Use
  Company Number: 218112

PATIENT
  Age: 58 Year
  Sex: Female
  Weight: 72 kg

DRUGS (3)
  1. AVASTIN [Suspect]
     Indication: COLON CANCER
     Dosage: 540MG, Q3W, INTRAVENOUS
     Route: 042
     Dates: start: 20050808, end: 20050919
  2. OXALIPLATIN (OXALIPLATIN) [Suspect]
     Indication: COLON CANCER
     Dosage: 85MG/M2, Q3W, INTRAVENOUS
     Route: 042
     Dates: start: 20050808, end: 20050919
  3. OXALIPLATIN (OXALIPLATIN) [Suspect]

REACTIONS (1)
  - HERPES ZOSTER [None]
